FAERS Safety Report 7731649-6 (Version None)
Quarter: 2011Q3

REPORT INFORMATION
  Report Type: 
  Country: None (occurrence: None)
  Receive Date: 20110906
  Receipt Date: 20110620
  Transmission Date: 20111222
  Serious: No
  Sender: FDA-Public Use
  Company Number: US-AMGEN-USASP2011028246

PATIENT
  Age: 81 Year
  Sex: Female
  Weight: 73.469 kg

DRUGS (3)
  1. PROLIA [Suspect]
     Indication: OSTEOPOROSIS
     Dosage: 60 MG, Q6MO
     Dates: start: 20101206
  2. DIURETICS [Concomitant]
  3. OXYBUTYNIN [Concomitant]

REACTIONS (4)
  - DEPRESSED MOOD [None]
  - RASH PRURITIC [None]
  - RASH ERYTHEMATOUS [None]
  - RASH [None]
